FAERS Safety Report 9001252 (Version 1)
Quarter: 2013Q1

REPORT INFORMATION
  Report Type: Spontaneous
  Country: AU (occurrence: AU)
  Receive Date: 20130107
  Receipt Date: 20130107
  Transmission Date: 20140127
  Serious: Yes (Death, Hospitalization)
  Sender: FDA-Public Use
  Company Number: AU-ASTRAZENECA-2013SE00691

PATIENT
  Age: 82 Year
  Sex: Female

DRUGS (6)
  1. CANDESARTAN CILEXETIL [Suspect]
     Route: 048
  2. CRESTOR [Suspect]
     Route: 048
  3. FRUSEMIDE [Suspect]
  4. LANOXIN [Suspect]
  5. PARIET [Suspect]
     Dates: start: 20120822
  6. PRADAXA [Suspect]
     Indication: ATRIAL FIBRILLATION

REACTIONS (2)
  - Cardiac failure [Fatal]
  - Pneumonia [Fatal]
